FAERS Safety Report 22853601 (Version 2)
Quarter: 2024Q3

REPORT INFORMATION
  Report Type: Spontaneous
  Country: US (occurrence: US)
  Receive Date: 20230823
  Receipt Date: 20240910
  Transmission Date: 20241017
  Serious: No
  Sender: SANOFI AVENTIS
  Company Number: US-SA-SAC20230818000463

PATIENT
  Age: 33 Year
  Sex: Female

DRUGS (2)
  1. DUPIXENT [Suspect]
     Active Substance: DUPILUMAB
     Indication: Chronic rhinosinusitis with nasal polyps
     Dosage: 300 MG, QOW
     Route: 058
     Dates: start: 202212
  2. DUPIXENT [Suspect]
     Active Substance: DUPILUMAB
     Indication: Sinus polyp degeneration

REACTIONS (8)
  - Injection site rash [Recovered/Resolved]
  - Nasal congestion [Unknown]
  - Anosmia [Unknown]
  - Illness [Unknown]
  - Injection site pain [Unknown]
  - Injection site reaction [Unknown]
  - Intentional dose omission [Unknown]
  - Product use in unapproved indication [Unknown]
